FAERS Safety Report 9277429 (Version 2)
Quarter: 2013Q2

REPORT INFORMATION
  Report Type: Report from Study
  Country: CO (occurrence: CO)
  Receive Date: 20130508
  Receipt Date: 20130509
  Transmission Date: 20140414
  Serious: No
  Sender: FDA-Public Use
  Company Number: CO-ROCHE-1221846

PATIENT
  Age: 85 Year
  Sex: Female
  Weight: 55.07 kg

DRUGS (2)
  1. RANIBIZUMAB [Suspect]
     Indication: AGE-RELATED MACULAR DEGENERATION
     Route: 050
     Dates: start: 20121116
  2. LOSARTAN [Concomitant]

REACTIONS (1)
  - Influenza [Recovered/Resolved]
